FAERS Safety Report 15009639 (Version 1)
Quarter: 2018Q2

REPORT INFORMATION
  Report Type: Spontaneous
  Country: PT (occurrence: PT)
  Receive Date: 20180614
  Receipt Date: 20180614
  Transmission Date: 20180711
  Serious: Yes (Hospitalization)
  Sender: FDA-Public Use
  Company Number: PT-VIVIMED-2017SP015474

PATIENT

DRUGS (11)
  1. CLONIXIN [Interacting]
     Active Substance: CLONIXIN
     Indication: GOUTY ARTHRITIS
     Dosage: 300 MG/DAY
     Route: 065
  2. METFORMIN [Interacting]
     Active Substance: METFORMIN HYDROCHLORIDE
     Indication: PRODUCT USED FOR UNKNOWN INDICATION
     Dosage: 3000 MG/DAY
     Route: 065
  3. ENALAPRIL/HYDROCHLOROTHIAZIDE [Interacting]
     Active Substance: ENALAPRIL MALEATE\HYDROCHLOROTHIAZIDE
     Indication: PRODUCT USED FOR UNKNOWN INDICATION
     Dosage: 12.5 MG/DAY OF HYDROCHLOROTHIAZIDE
     Route: 065
  4. ASPIRIN. [Interacting]
     Active Substance: ASPIRIN
     Dosage: 150 MG/DAY
     Route: 065
  5. DIAZEPAM. [Interacting]
     Active Substance: DIAZEPAM
     Indication: PRODUCT USED FOR UNKNOWN INDICATION
     Dosage: UNK
     Route: 065
  6. COLCHICINE. [Interacting]
     Active Substance: COLCHICINE
     Indication: GOUTY ARTHRITIS
     Dosage: 2 MG/DAY
     Route: 065
  7. INDAPAMIDE. [Interacting]
     Active Substance: INDAPAMIDE
     Indication: PRODUCT USED FOR UNKNOWN INDICATION
     Dosage: 2.5 MG/DAY
     Route: 065
  8. GLICLAZIDE [Interacting]
     Active Substance: GLICLAZIDE
     Indication: PRODUCT USED FOR UNKNOWN INDICATION
     Dosage: UNK
     Route: 065
  9. ASPIRIN. [Interacting]
     Active Substance: ASPIRIN
     Indication: PRODUCT USED FOR UNKNOWN INDICATION
     Dosage: 100 MG, UNK
     Route: 065
  10. IBUPROFEN. [Suspect]
     Active Substance: IBUPROFEN
     Indication: MYALGIA
     Dosage: 800 MG/DAY
     Route: 065
  11. AMLODIPINE [Suspect]
     Active Substance: AMLODIPINE BESYLATE
     Indication: PRODUCT USED FOR UNKNOWN INDICATION
     Dosage: 5 MG/DAY
     Route: 065

REACTIONS (14)
  - Drug interaction [Recovered/Resolved]
  - Cholestasis [Recovered/Resolved]
  - Diarrhoea [Recovered/Resolved]
  - Gout [Recovered/Resolved]
  - Blood alkaline phosphatase increased [Recovered/Resolved]
  - Myalgia [Recovered/Resolved]
  - Haematotoxicity [Recovered/Resolved]
  - Neutrophilia [Recovered/Resolved]
  - Leukocytosis [Recovered/Resolved]
  - Hepatotoxicity [Recovered/Resolved]
  - Anaemia [Recovered/Resolved]
  - Condition aggravated [Recovered/Resolved]
  - Thrombocytosis [Recovered/Resolved]
  - Hyperglycaemia [Recovered/Resolved]
